FAERS Safety Report 6609474-9 (Version None)
Quarter: 2010Q1

REPORT INFORMATION
  Report Type: 
  Country: None (occurrence: None)
  Receive Date: 20100302
  Receipt Date: 20100219
  Transmission Date: 20100710
  Serious: Yes (Other)
  Sender: FDA-Public Use
  Company Number: SE-JNJFOC-20100204676

PATIENT
  Age: 83 Year
  Sex: Male
  Weight: 52 kg

DRUGS (5)
  1. HALDOL [Suspect]
     Indication: PSYCHOTIC DISORDER
  2. CIPRAMIL [Suspect]
     Indication: DEPRESSION
     Route: 065
  3. DIGOXIN [Concomitant]
     Route: 065
  4. FUROSEMIDE [Concomitant]
     Route: 065
  5. TROMBYL [Concomitant]
     Route: 065

REACTIONS (14)
  - ACCIDENTAL EXPOSURE [None]
  - ANXIETY [None]
  - APATHY [None]
  - DECREASED APPETITE [None]
  - DYSPEPSIA [None]
  - FATIGUE [None]
  - FEAR [None]
  - MOTOR DYSFUNCTION [None]
  - PALPITATIONS [None]
  - PARKINSONISM [None]
  - RESTLESSNESS [None]
  - STROKE IN EVOLUTION [None]
  - VISION BLURRED [None]
  - WEIGHT DECREASED [None]
